FAERS Safety Report 6104049-2 (Version None)
Quarter: 2009Q1

REPORT INFORMATION
  Report Type: 
  Country: None (occurrence: None)
  Receive Date: 20090227
  Receipt Date: 20090218
  Transmission Date: 20090719
  Serious: Yes (Death)
  Sender: FDA-Public Use
  Company Number: GXKR2009JP02179

PATIENT
  Age: 70 Year
  Sex: Male

DRUGS (4)
  1. RIFAMPICIN [Suspect]
     Indication: PULMONARY TUBERCULOSIS
     Dosage: 450 MG, QD, ORAL
     Route: 048
     Dates: start: 20090114
  2. ISONIAZID [Concomitant]
  3. PYRAZINAMIDE [Concomitant]
  4. LEVOFLOXACIN [Concomitant]

REACTIONS (1)
  - HEPATITIS FULMINANT [None]
